FAERS Safety Report 7164317-2 (Version None)
Quarter: 2010Q4

REPORT INFORMATION
  Report Type: 
  Country: None (occurrence: None)
  Receive Date: 20101123
  Receipt Date: 20101015
  Transmission Date: 20110411
  Serious: No
  Sender: FDA-Public Use
  Company Number: 020534

PATIENT
  Sex: Female
  Weight: 68.4 kg

DRUGS (7)
  1. CIMZIA [Suspect]
     Indication: CROHN'S DISEASE
     Dosage: (400 MG 1X/MONTH SUBCUTANEOUS)
     Route: 058
     Dates: start: 20100801
  2. VALIUM [Concomitant]
  3. VICODIN [Concomitant]
  4. ULTRAM [Concomitant]
  5. PREVACID [Concomitant]
  6. ROBAXIN /000479/ [Concomitant]
  7. FLEXERIL [Concomitant]

REACTIONS (1)
  - COUGH [None]
